FAERS Safety Report 6951043 (Version 4)
Quarter: 2014Q1

REPORT INFORMATION
  Report Type: Spontaneous
  Country: US (occurrence: None)
  Receive Date: 20090227
  Receipt Date: 20140304
  Transmission Date: 20141002
  Serious: Yes (Other)
  Sender: FDA-Public Use
  Company Number: RB-0286-2008

PATIENT
  Sex: Male

DRUGS (2)
  1. SUBOXONE (RECKITT BENCKISER) [Suspect]
     Indication: DRUG DEPENDENCE
     Dosage: 8 MG BID TRANSPLACENTAL
     Route: 064
  2. SUBUTEX [Suspect]
     Indication: DRUG DEPENDENCE
     Dosage: 20 MG QD TRANSPLACENTAL
     Route: 064
     Dates: end: 200801

REACTIONS (3)
  - Drug withdrawal syndrome neonatal [None]
  - Maternal exposure during pregnancy [None]
  - Foetal exposure during pregnancy [None]
